FAERS Safety Report 10362859 (Version 2)
Quarter: 2014Q3

REPORT INFORMATION
  Report Type: Report from Study
  Country: KR (occurrence: KR)
  Receive Date: 20140805
  Receipt Date: 20140908
  Transmission Date: 20150326
  Serious: Yes (Death, Hospitalization)
  Sender: FDA-Public Use
  Company Number: KR-SA-2014SA101302

PATIENT
  Age: 39 Year
  Sex: Female
  Weight: 106 kg

DRUGS (4)
  1. LANTUS [Suspect]
     Active Substance: INSULIN GLARGINE
     Indication: DIABETES MELLITUS
     Dosage: DOSE:18 UNIT(S)
     Route: 058
     Dates: start: 20140526, end: 20140730
  2. SOLONDO [Concomitant]
     Active Substance: PREDNISOLONE
     Indication: IMMUNOSUPPRESSANT DRUG THERAPY
     Route: 048
     Dates: start: 20140718
  3. ANTINEOPLASTIC AGENTS [Concomitant]
     Active Substance: UNSPECIFIED INGREDIENT
     Dates: start: 20140521
  4. MORPHINE SULFATE. [Concomitant]
     Active Substance: MORPHINE SULFATE
     Indication: ANALGESIC THERAPY
     Route: 042
     Dates: start: 20140803, end: 20140806

REACTIONS (2)
  - Abdominal distension [Recovered/Resolved]
  - Malignant neoplasm progression [Fatal]

NARRATIVE: CASE EVENT DATE: 20140718
